FAERS Safety Report 18527250 (Version 1)
Quarter: 2020Q4

REPORT INFORMATION
  Report Type: Spontaneous
  Country: JP (occurrence: JP)
  Receive Date: 20201120
  Receipt Date: 20201120
  Transmission Date: 20210114
  Serious: Yes (Hospitalization)
  Sender: FDA-Public Use
  Company Number: JP-AMGEN-JPNSP2020108998

PATIENT
  Age: 8 Decade
  Sex: Female

DRUGS (2)
  1. ROMIPLATE [Suspect]
     Active Substance: ROMIPLOSTIM
     Dosage: UNK, 1X/WEEK
     Route: 058
  2. ROMIPLATE [Suspect]
     Active Substance: ROMIPLOSTIM
     Indication: APLASTIC ANAEMIA
     Dosage: 15 UG/KG, 1X/2 WEEKS
     Route: 058

REACTIONS (2)
  - Off label use [Unknown]
  - Pneumonia [Unknown]
